FAERS Safety Report 6109330-9 (Version None)
Quarter: 2009Q1

REPORT INFORMATION
  Report Type: 
  Country: None (occurrence: None)
  Receive Date: 20090309
  Receipt Date: 20090309
  Transmission Date: 20090719
  Serious: Yes (Hospitalization)
  Sender: FDA-Public Use
  Company Number: None

PATIENT
  Age: 62 Year
  Sex: Female
  Weight: 55.7924 kg

DRUGS (6)
  1. GEMCITABINE [Suspect]
     Indication: PANCREATIC CARCINOMA
     Dosage: WEIGHT BASED
     Dates: start: 20090116
  2. GEMCITABINE [Suspect]
     Indication: PANCREATIC CARCINOMA
     Dosage: WEIGHT BASED
     Dates: start: 20090129
  3. GEMCITABINE [Suspect]
     Indication: PANCREATIC CARCINOMA
     Dosage: WEIGHT BASED
     Dates: start: 20090213
  4. AVASTIN [Suspect]
     Indication: PANCREATIC CARCINOMA
     Dosage: WEIGHT BASED
     Dates: start: 20090116
  5. AVASTIN [Suspect]
     Indication: PANCREATIC CARCINOMA
     Dosage: WEIGHT BASED
     Dates: start: 20090129
  6. AVASTIN [Suspect]
     Indication: PANCREATIC CARCINOMA
     Dosage: WEIGHT BASED
     Dates: start: 20090213

REACTIONS (7)
  - ASTHENIA [None]
  - BILIARY FISTULA [None]
  - DECREASED APPETITE [None]
  - DEHYDRATION [None]
  - FATIGUE [None]
  - METASTASES TO LIVER [None]
  - PANCREATIC CARCINOMA METASTATIC [None]
